FAERS Safety Report 5858855-X (Version None)
Quarter: 2008Q3

REPORT INFORMATION
  Report Type: 
  Country: None (occurrence: None)
  Receive Date: 20080818
  Receipt Date: 20080429
  Transmission Date: 20090109
  Serious: No
  Sender: FDA-Public Use
  Company Number: WAES 0803USA00973

PATIENT
  Age: 54 Year
  Sex: Female

DRUGS (14)
  1. JANUVIA [Suspect]
     Indication: TYPE 2 DIABETES MELLITUS
     Dosage: 100 MG/DAILY/PO
     Route: 048
     Dates: start: 20070221, end: 20080213
  2. ANTIVERT [Concomitant]
  3. BYETTA [Concomitant]
  4. COREG [Concomitant]
  5. HYZAAR [Concomitant]
  6. K-DUR [Concomitant]
  7. LANTUS [Concomitant]
  8. NOVOLIN [Concomitant]
  9. PLAVIX [Concomitant]
  10. REGLAN [Concomitant]
  11. VYTORIN [Concomitant]
  12. GLYBURIDE [Concomitant]
  13. ISOSORBIDE [Concomitant]
  14. METFORMIN HCL [Concomitant]

REACTIONS (1)
  - PLATELET COUNT DECREASED [None]
